FAERS Safety Report 10368583 (Version 1)
Quarter: 2014Q3

REPORT INFORMATION
  Report Type: Spontaneous
  Country: FR (occurrence: FR)
  Receive Date: 20140807
  Receipt Date: 20140807
  Transmission Date: 20150326
  Serious: Yes (Hospitalization)
  Sender: FDA-Public Use
  Company Number: FR-GLAXOSMITHKLINE-B1019169A

PATIENT
  Age: 58 Year
  Sex: Female

DRUGS (4)
  1. QUETIAPINE FUMARATE. [Concomitant]
     Active Substance: QUETIAPINE FUMARATE
     Indication: DEPRESSION
     Route: 048
     Dates: start: 201111, end: 20140628
  2. LAMICTAL [Suspect]
     Active Substance: LAMOTRIGINE
     Indication: EPILEPSY
     Route: 048
     Dates: start: 20140619, end: 20140627
  3. TERCIAN [Concomitant]
     Active Substance: CYAMEMAZINE
     Indication: DEPRESSION
     Dosage: 25DROP AT NIGHT
     Route: 048
     Dates: start: 20140605, end: 20140628
  4. AOTAL [Concomitant]
     Active Substance: ACAMPROSATE CALCIUM
     Indication: PROPHYLAXIS AGAINST ALCOHOLIC WITHDRAWAL SYNDROME
     Dosage: 1UNIT PER DAY
     Route: 048
     Dates: start: 20140605, end: 20140628

REACTIONS (5)
  - Dermatitis exfoliative [Recovered/Resolved]
  - Rash erythematous [Recovered/Resolved]
  - Incorrect dose administered [Unknown]
  - Telangiectasia [Recovered/Resolved]
  - Purpura [Recovered/Resolved]

NARRATIVE: CASE EVENT DATE: 20140628
